FAERS Safety Report 9380291 (Version 2)
Quarter: 2013Q3

REPORT INFORMATION
  Report Type: Spontaneous
  Country: US (occurrence: US)
  Receive Date: 20130702
  Receipt Date: 20130729
  Transmission Date: 20140515
  Serious: Yes (Hospitalization, Other)
  Sender: FDA-Public Use
  Company Number: US-UCBSA-090084

PATIENT
  Sex: Male
  Weight: 63.5 kg

DRUGS (2)
  1. KEPPRA XR [Suspect]
     Indication: CONVULSION
     Dosage: STRENGTH: 500MG 3/DAILY
  2. KEPPRA XR [Suspect]
     Indication: CONVULSION
     Dosage: 2 PILLS

REACTIONS (2)
  - Grand mal convulsion [Recovering/Resolving]
  - Inappropriate schedule of drug administration [Unknown]
